FAERS Safety Report 6524988-8 (Version None)
Quarter: 2010Q1

REPORT INFORMATION
  Report Type: 
  Country: None (occurrence: None)
  Receive Date: 20100104
  Receipt Date: 20090306
  Transmission Date: 20100710
  Serious: Yes (Other)
  Sender: FDA-Public Use
  Company Number: PHHY2009VE54199

PATIENT
  Sex: Female

DRUGS (3)
  1. ACLASTA [Suspect]
     Dosage: 0.05 MG/ML, UNK
     Dates: start: 20080101
  2. CALCIUM [Concomitant]
  3. ANALGESICS [Concomitant]

REACTIONS (6)
  - HIP SURGERY [None]
  - HYPERSENSITIVITY [None]
  - JOINT SWELLING [None]
  - KNEE ARTHROPLASTY [None]
  - PAIN [None]
  - SKIN DISCOLOURATION [None]
